FAERS Safety Report 10082395 (Version 1)
Quarter: 2014Q2

REPORT INFORMATION
  Report Type: Spontaneous
  Country: NL (occurrence: NL)
  Receive Date: 20140416
  Receipt Date: 20140416
  Transmission Date: 20141212
  Serious: Yes (Other)
  Sender: FDA-Public Use
  Company Number: NL-009507513-1404NLD007948

PATIENT
  Age: 75 Year
  Sex: Female
  Weight: 158 kg

DRUGS (2)
  1. ALENDRONATE SODIUM [Suspect]
     Indication: OSTEOPOROSIS
     Dosage: 1 KEER PER WEEK 1 STUK(S)
     Route: 048
     Dates: start: 2008, end: 201311
  2. CALCICHEW [Concomitant]
     Dosage: 1 KEER PER DAG 1 STUK(S), EXTRA INFO: 500MG/800IU
     Route: 048
     Dates: start: 2005

REACTIONS (1)
  - Femur fracture [Recovering/Resolving]
